FAERS Safety Report 8943623 (Version 2)
Quarter: 2012Q4

REPORT INFORMATION
  Report Type: 
  Country: DK (occurrence: DK)
  Receive Date: 20121203
  Receipt Date: 20121211
  Transmission Date: 20130627
  Serious: Yes (Death)
  Sender: FDA-Public Use
  Company Number: US-WATSON-2012-20945

PATIENT
  Age: 50 Year
  Sex: Male

DRUGS (5)
  1. AMLODIPINE (UNKNOWN) [Suspect]
     Indication: BLOOD PRESSURE INCREASED
     Dosage: unk
     Route: 048
  2. ENALAPRIL [Concomitant]
     Indication: BLOOD PRESSURE INCREASED
     Dosage: 10 mg, daily
     Route: 065
  3. ACETYLSALICYLIC ACID ALUMINIUM [Concomitant]
     Indication: BLOOD PRESSURE INCREASED
     Dosage: 150 mg, daily
     Route: 065
  4. DIPYRIDAMOLE [Concomitant]
     Indication: BLOOD PRESSURE INCREASED
     Dosage: 400 mg, daily
     Route: 065
  5. ETHANOL [Concomitant]
     Indication: PRODUCT USED FOR UNKNOWN INDICATION
     Dosage: UNK, unknown
     Route: 065

REACTIONS (2)
  - Death [Fatal]
  - Overdose [Fatal]
